FAERS Safety Report 5079680-6 (Version None)
Quarter: 2006Q3

REPORT INFORMATION
  Report Type: 
  Country: None (occurrence: None)
  Receive Date: 20060808
  Receipt Date: 20060720
  Transmission Date: 20061208
  Serious: Yes (Hospitalization)
  Sender: FDA-Public Use
  Company Number: US200607003743

PATIENT
  Age: 60 Year
  Sex: Female

DRUGS (4)
  1. FORTEO [Suspect]
     Indication: OSTEOPOROSIS
     Dates: start: 20050201, end: 20060601
  2. FORTEO PNE (250MCG/ML) (FORTEO PEN 250MCG/ML (3ML)) PEN, DISPOSABLE [Concomitant]
  3. RESTORIL [Concomitant]
  4. ATIVAN [Concomitant]

REACTIONS (6)
  - DISORIENTATION [None]
  - DYSARTHRIA [None]
  - PRESCRIBED OVERDOSE [None]
  - SOMNOLENCE [None]
  - THERAPY CESSATION [None]
  - URETHRAL CARBUNCLE [None]
